FAERS Safety Report 7521468-8 (Version None)
Quarter: 2011Q2

REPORT INFORMATION
  Report Type: 
  Country: None (occurrence: None)
  Receive Date: 20110603
  Receipt Date: 20110131
  Transmission Date: 20111010
  Serious: Yes (Hospitalization)
  Sender: FDA-Public Use
  Company Number: US-BAYER-201039842NA

PATIENT
  Age: 20 Year
  Sex: Female
  Weight: 61 kg

DRUGS (11)
  1. YAZ [Suspect]
     Indication: ACNE
     Dosage: UNK
     Dates: start: 20080501, end: 20081201
  2. MULTI-VITAMIN [Concomitant]
  3. IBUPROFEN [Concomitant]
     Dosage: UNK
     Dates: start: 20081201
  4. EVOCLIN [Concomitant]
  5. YAZ [Suspect]
     Indication: MUSCLE SPASMS
  6. VITAMIN A [Concomitant]
     Dosage: 8000 U, UNK
     Dates: start: 20080811
  7. ATRALIN [Concomitant]
  8. DORYX [Concomitant]
  9. ANTIBIOTICS [Concomitant]
     Indication: PRODUCT USED FOR UNKNOWN INDICATION
  10. TEA TREE GRAPEFRUIT WASH [Concomitant]
  11. ADVIL LIQUI-GELS [Concomitant]
     Indication: MUSCLE SPASMS

REACTIONS (3)
  - DEEP VEIN THROMBOSIS [None]
  - PULMONARY EMBOLISM [None]
  - THROMBOSIS [None]
